FAERS Safety Report 9393805 (Version 3)
Quarter: 2013Q3

REPORT INFORMATION
  Report Type: Spontaneous
  Country: US (occurrence: US)
  Receive Date: 20130710
  Receipt Date: 20130827
  Transmission Date: 20140515
  Serious: Yes (Hospitalization)
  Sender: FDA-Public Use
  Company Number: US-ACTELION-A-NJ2013-85580

PATIENT
  Age: 51 Year
  Sex: Female

DRUGS (2)
  1. VELETRI [Suspect]
     Indication: PULMONARY ARTERIAL HYPERTENSION
     Dosage: 40 NG/KG, PER MIN
     Route: 041
     Dates: start: 20111212
  2. SILDENAFIL [Concomitant]

REACTIONS (4)
  - Thrombosis [Unknown]
  - Cellulitis [Unknown]
  - Transfusion [Unknown]
  - Fall [Unknown]
